FAERS Safety Report 19511564 (Version 1)
Quarter: 2021Q3

REPORT INFORMATION
  Report Type: Spontaneous
  Country: BR (occurrence: BR)
  Receive Date: 20210709
  Receipt Date: 20210709
  Transmission Date: 20211014
  Serious: Yes (Other)
  Sender: FDA-Public Use
  Company Number: BR-ASTRAZENECA-2021A597829

PATIENT

DRUGS (1)
  1. ACALABRUTINIB. [Suspect]
     Active Substance: ACALABRUTINIB
     Dosage: DOSE UNKNOWN
     Route: 048
     Dates: start: 20210629

REACTIONS (1)
  - Central nervous system fungal infection [Unknown]

NARRATIVE: CASE EVENT DATE: 2021
